FAERS Safety Report 6516783-0 (Version None)
Quarter: 2009Q4

REPORT INFORMATION
  Report Type: 
  Country: None (occurrence: None)
  Receive Date: 20091223
  Receipt Date: 20091216
  Transmission Date: 20100525
  Serious: Yes (Other)
  Sender: FDA-Public Use
  Company Number: NZ-ABBOTT-09P-009-0611520-00

PATIENT
  Sex: Female

DRUGS (9)
  1. HUMIRA [Suspect]
     Indication: RHEUMATOID ARTHRITIS
     Dosage: 3 INJECTIONS
     Dates: end: 20091104
  2. PREDNISONE [Suspect]
     Indication: RHEUMATOID ARTHRITIS
  3. THYROXIN [Concomitant]
     Indication: AUTOIMMUNE THYROIDITIS
  4. METHOTREXATE [Concomitant]
     Indication: DRUG USE FOR UNKNOWN INDICATION
  5. FOLIC ACID [Concomitant]
     Indication: DRUG USE FOR UNKNOWN INDICATION
  6. VOLTAREN [Concomitant]
     Indication: DRUG USE FOR UNKNOWN INDICATION
  7. OMEPRAZOLE [Concomitant]
     Indication: GASTROOESOPHAGEAL REFLUX DISEASE
  8. CALCIUM CARBONATE [Concomitant]
     Indication: DRUG USE FOR UNKNOWN INDICATION
  9. FISH OIL [Concomitant]
     Indication: DRUG USE FOR UNKNOWN INDICATION

REACTIONS (14)
  - ABDOMINAL PAIN [None]
  - ABSCESS [None]
  - BLINDNESS UNILATERAL [None]
  - CATARACT [None]
  - DIARRHOEA [None]
  - FACE OEDEMA [None]
  - GINGIVAL PAIN [None]
  - HEADACHE [None]
  - HYPOAESTHESIA [None]
  - LOOSE TOOTH [None]
  - NAUSEA [None]
  - PAIN IN JAW [None]
  - PARAESTHESIA [None]
  - SENSITIVITY OF TEETH [None]
